FAERS Safety Report 8113256-9 (Version None)
Quarter: 2012Q1

REPORT INFORMATION
  Report Type: 
  Country: None (occurrence: None)
  Receive Date: 20120203
  Receipt Date: 20120126
  Transmission Date: 20120608
  Serious: Yes (Hospitalization)
  Sender: FDA-Public Use
  Company Number: PHHY2012DE007310

PATIENT
  Sex: Female

DRUGS (1)
  1. METHERGINE [Suspect]
     Dosage: 2.5 MG, UNK
     Route: 048
     Dates: start: 20020824, end: 20020824

REACTIONS (3)
  - ACCIDENTAL EXPOSURE [None]
  - HEADACHE [None]
  - NAUSEA [None]
